FAERS Safety Report 7671074-X (Version None)
Quarter: 2011Q3

REPORT INFORMATION
  Report Type: 
  Country: None (occurrence: None)
  Receive Date: 20110808
  Receipt Date: 20110808
  Transmission Date: 20111222
  Serious: Yes (Hospitalization, Other)
  Sender: FDA-Public Use
  Company Number: None

PATIENT
  Age: 2 Month
  Weight: 4.0824 kg

DRUGS (2)
  1. ACETAMINOPHEN [Suspect]
     Indication: PAIN
     Dosage: 0.2ML PO
     Route: 048
     Dates: start: 20110802
  2. ACETAMINOPHEN [Suspect]
     Indication: CIRCUMCISION
     Dosage: 0.2ML PO
     Route: 048
     Dates: start: 20110802

REACTIONS (2)
  - HOSPITALISATION [None]
  - UNEVALUABLE EVENT [None]
